FAERS Safety Report 25469679 (Version 1)
Quarter: 2025Q2

REPORT INFORMATION
  Report Type: Report from Study
  Country: IT (occurrence: IT)
  Receive Date: 20250623
  Receipt Date: 20250623
  Transmission Date: 20250717
  Serious: Yes (Other)
  Sender: ALEXION PHARMACEUTICALS
  Company Number: IT-AstraZeneca-CH-00890874A

PATIENT
  Age: 65 Year
  Weight: 75 kg

DRUGS (2)
  1. LYNPARZA [Suspect]
     Active Substance: OLAPARIB
     Indication: Endometrial cancer recurrent
     Dosage: 300 MILLIGRAM, BID
  2. DURVALUMAB [Suspect]
     Active Substance: DURVALUMAB
     Indication: Endometrial cancer recurrent

REACTIONS (6)
  - Hypersensitivity [Unknown]
  - Malaise [Recovered/Resolved]
  - Tremor [Unknown]
  - Headache [Unknown]
  - Back pain [Unknown]
  - Dyspnoea [Unknown]
